FAERS Safety Report 9233966 (Version 1)
Quarter: 2013Q1

REPORT INFORMATION
  Report Type: Spontaneous
  Country: US (occurrence: None)
  Receive Date: 20121031
  Receipt Date: 20121031
  Transmission Date: 20140127
  Serious: No
  Sender: FDA-Public Use
  Company Number: PHEH2012US015317

PATIENT
  Sex: Female
  Weight: 81.65 kg

DRUGS (7)
  1. GILENYA [Suspect]
     Dosage: 1 DF, QD, ORAL
     Route: 048
  2. XANAX (ALPRAZOLAM) TABLET 0.5MG [Concomitant]
  3. RELAFEN (NABUMETONE) TABLET, 750MG [Concomitant]
  4. TRAMADOL HYDROCHLORIDE (TRAMADOL HYDROCHLORIDE) [Concomitant]
  5. BACLOFEN (BACLOFEN) TABLET [Concomitant]
  6. CELEXA (CITALOPRAM HYDROBROMIDE) TABLET [Concomitant]
  7. ACTHAR HP (CORTICOTROPIN) INJECTION [Concomitant]

REACTIONS (1)
  - Muscular weakness [None]
